FAERS Safety Report 9139677 (Version 1)
Quarter: 2013Q1

REPORT INFORMATION
  Report Type: Spontaneous
  Country: US (occurrence: US)
  Receive Date: 20130305
  Receipt Date: 20130305
  Transmission Date: 20140127
  Serious: No
  Sender: FDA-Public Use
  Company Number: US-ENDO PHARMACEUTICALS INC.-SPLN20110114

PATIENT
  Sex: Female
  Weight: 42.22 kg

DRUGS (1)
  1. SUPPRELIN LA [Suspect]
     Indication: PRECOCIOUS PUBERTY
     Route: 058
     Dates: start: 201011

REACTIONS (4)
  - Hair growth abnormal [Unknown]
  - Breast enlargement [Unknown]
  - Drug ineffective [Unknown]
  - Mood swings [Unknown]
